FAERS Safety Report 9719189 (Version 1)
Quarter: 2013Q4

REPORT INFORMATION
  Report Type: Spontaneous
  Country: US (occurrence: US)
  Receive Date: 20131127
  Receipt Date: 20131127
  Transmission Date: 20140711
  Serious: Yes (Other)
  Sender: FDA-Public Use
  Company Number: CHPA2013US017543

PATIENT
  Age: 65 Year
  Sex: Male

DRUGS (3)
  1. PREVACID 24HR 15MG [Suspect]
     Indication: GASTROOESOPHAGEAL REFLUX DISEASE
     Dosage: 30 MG, QD
     Route: 048
  2. PREVACID 24HR 15MG [Suspect]
     Indication: OFF LABEL USE
  3. CIPROFLOXACIN [Suspect]
     Dosage: 500 MG, UNK

REACTIONS (7)
  - Myocardial infarction [Recovered/Resolved]
  - Feeling abnormal [Unknown]
  - Palpitations [Unknown]
  - Malaise [Not Recovered/Not Resolved]
  - Hypoaesthesia [Unknown]
  - Incorrect drug administration duration [Unknown]
  - Incorrect dose administered [Unknown]
